FAERS Safety Report 9323759 (Version 1)
Quarter: 2013Q2

REPORT INFORMATION
  Report Type: Spontaneous
  Country: PH (occurrence: PH)
  Receive Date: 20130603
  Receipt Date: 20130603
  Transmission Date: 20140414
  Serious: Yes (Other)
  Sender: FDA-Public Use
  Company Number: PH-JNJFOC-20130517362

PATIENT
  Sex: Female

DRUGS (3)
  1. STELARA [Suspect]
     Indication: PSORIASIS
     Route: 058
     Dates: start: 201303
  2. STELARA [Suspect]
     Indication: PSORIASIS
     Route: 058
     Dates: start: 201302
  3. IRON [Concomitant]
     Route: 065

REACTIONS (1)
  - Ephelides [Unknown]
